FAERS Safety Report 18817951 (Version 3)
Quarter: 2021Q1

REPORT INFORMATION
  Report Type: Spontaneous
  Country: GR (occurrence: GR)
  Receive Date: 20210201
  Receipt Date: 20210305
  Transmission Date: 20210419
  Serious: Yes (Other)
  Sender: FDA-Public Use
  Company Number: GR-CELLTRION INC.-2020GR025081

PATIENT

DRUGS (12)
  1. INFLIXIMAB (UNKNOWN) [Suspect]
     Active Substance: INFLIXIMAB
     Dosage: 5 MG/KG (6 DOSES) AT 0, 2, 6,12,18, AND 24 WEEKS
     Route: 041
  2. INFLIXIMAB (UNKNOWN) [Suspect]
     Active Substance: INFLIXIMAB
     Dosage: 5 MG/KG (6 DOSES) AT 0, 2, 6,12,18, AND 24 WEEKS
     Route: 041
  3. INFLIXIMAB (UNKNOWN) [Suspect]
     Active Substance: INFLIXIMAB
     Dosage: 5 MG/KG (6 DOSES) AT 0, 2, 6,12,18, AND 24 WEEKS
     Route: 041
  4. REMICADE [Suspect]
     Active Substance: INFLIXIMAB
     Indication: SARCOIDOSIS
     Dosage: 5 MG/KG (350 MG) (6 DOSES) AT 0, 2, 6,12,18, AND 24 WEEKS
     Route: 042
     Dates: start: 201506, end: 201511
  5. INFLIXIMAB (UNKNOWN) [Suspect]
     Active Substance: INFLIXIMAB
     Dosage: 5 MG/KG (6 DOSES) AT 0, 2, 6,12,18, AND 24 WEEKS
     Route: 041
  6. INFLIXIMAB (UNKNOWN) [Suspect]
     Active Substance: INFLIXIMAB
     Dosage: 5 MG/KG (6 DOSES) AT 0, 2, 6,12,18, AND 24 WEEKS
     Route: 065
  7. LEFLUNOMIDE. [Concomitant]
     Active Substance: LEFLUNOMIDE
     Dosage: 5 MG, QD
     Route: 065
     Dates: start: 2013
  8. LEFLUNOMIDE. [Concomitant]
     Active Substance: LEFLUNOMIDE
     Indication: SARCOIDOSIS
     Dosage: 20 MG, QD
     Route: 065
  9. INFLIXIMAB (UNKNOWN) [Suspect]
     Active Substance: INFLIXIMAB
     Dosage: 5 MG/KG (6 DOSES) AT 0, 2, 6,12,18, AND 24 WEEKS
     Route: 041
  10. PREDNISONE. [Concomitant]
     Active Substance: PREDNISONE
     Indication: SARCOIDOSIS
     Dosage: UNK, (BELOW 15MG)
     Route: 065
  11. PREDNISONE. [Concomitant]
     Active Substance: PREDNISONE
     Dosage: 20 MILLIGRAM, QD
     Route: 065
     Dates: start: 2014
  12. INFLIXIMAB (UNKNOWN) [Suspect]
     Active Substance: INFLIXIMAB
     Indication: SARCOIDOSIS
     Dosage: 5 MG/KG (6 DOSES) AT 0, 2, 6,12,18, AND 24 WEEKS
     Route: 041

REACTIONS (4)
  - Erythema multiforme [Recovered/Resolved]
  - Off label use [Unknown]
  - Product use in unapproved indication [Unknown]
  - Drug effective for unapproved indication [Unknown]

NARRATIVE: CASE EVENT DATE: 201511
